FAERS Safety Report 6551506-0 (Version None)
Quarter: 2010Q1

REPORT INFORMATION
  Report Type: 
  Country: None (occurrence: None)
  Receive Date: 20100126
  Receipt Date: 20100114
  Transmission Date: 20100710
  Serious: Yes (Hospitalization, Other)
  Sender: FDA-Public Use
  Company Number: US-CELGENEUS-163-20785-09051652

PATIENT
  Sex: Male

DRUGS (3)
  1. THALOMID [Suspect]
     Indication: MULTIPLE MYELOMA
     Route: 048
     Dates: start: 20080901, end: 20090427
  2. THALOMID [Suspect]
     Dosage: 100-200-50MG
     Route: 048
     Dates: start: 20031001
  3. THALOMID [Suspect]
     Dosage: 100-200MG
     Route: 048
     Dates: start: 20051001

REACTIONS (5)
  - FALL [None]
  - HYPOTENSION [None]
  - LOSS OF CONSCIOUSNESS [None]
  - OEDEMA PERIPHERAL [None]
  - WEIGHT DECREASED [None]
